FAERS Safety Report 17394219 (Version 1)
Quarter: 2020Q1

REPORT INFORMATION
  Report Type: Spontaneous
  Country: US (occurrence: US)
  Receive Date: 20200210
  Receipt Date: 20200210
  Transmission Date: 20200409
  Serious: No
  Sender: FDA-Public Use
  Company Number: US-AMGEN-USASP2020019884

PATIENT
  Sex: Female

DRUGS (2)
  1. PROLIA [Suspect]
     Active Substance: DENOSUMAB
     Indication: OSTEOPOROSIS POSTMENOPAUSAL
     Dosage: UNK, Q6MO
     Route: 065
  2. PROLIA [Suspect]
     Active Substance: DENOSUMAB
     Indication: OSTEOPENIA

REACTIONS (12)
  - Breast pain [Unknown]
  - Paraesthesia oral [Unknown]
  - Back pain [Unknown]
  - Ear pain [Unknown]
  - Inflammation [Unknown]
  - Pain [Unknown]
  - Skin tightness [Unknown]
  - Myalgia [Unknown]
  - Pain in extremity [Unknown]
  - Erythema [Unknown]
  - Bone pain [Unknown]
  - Anorectal discomfort [Unknown]
